FAERS Safety Report 21150172 (Version 1)
Quarter: 2022Q3

REPORT INFORMATION
  Report Type: Spontaneous
  Country: US (occurrence: US)
  Receive Date: 20220729
  Receipt Date: 20220729
  Transmission Date: 20221026
  Serious: No
  Sender: FDA-Public Use
  Company Number: US-NOVOPROD-904822

PATIENT
  Age: 75 Year
  Sex: Female

DRUGS (1)
  1. OZEMPIC [Suspect]
     Active Substance: SEMAGLUTIDE
     Indication: Product used for unknown indication
     Dosage: 0.5 MG, QW
     Route: 058
     Dates: start: 20210601

REACTIONS (5)
  - Chills [Recovered/Resolved]
  - Weight decreased [Not Recovered/Not Resolved]
  - Vomiting [Recovered/Resolved]
  - Diarrhoea [Recovered/Resolved]
  - Constipation [Not Recovered/Not Resolved]

NARRATIVE: CASE EVENT DATE: 20210101
